FAERS Safety Report 4478619-1 (Version None)
Quarter: 2004Q4

REPORT INFORMATION
  Report Type: 
  Country: None (occurrence: None)
  Receive Date: 20041019
  Receipt Date: 20041013
  Transmission Date: 20050328
  Serious: Yes (Hospitalization)
  Sender: FDA-Public Use
  Company Number: 200412348DE

PATIENT
  Sex: Female

DRUGS (3)
  1. AMARYL [Suspect]
     Route: 048
     Dates: start: 20040201
  2. UNKNOWN DRUG [Concomitant]
  3. FUROSEMIDE [Concomitant]

REACTIONS (4)
  - ANOREXIA [None]
  - APATHY [None]
  - FATIGUE [None]
  - HAEMOGLOBIN DECREASED [None]
